FAERS Safety Report 8420028-4 (Version None)
Quarter: 2012Q2

REPORT INFORMATION
  Report Type: 
  Country: None (occurrence: None)
  Receive Date: 20120607
  Receipt Date: 20120604
  Transmission Date: 20120825
  Serious: No
  Sender: FDA-Public Use
  Company Number: US-B.I. PHARMACEUTICALS,INC./RIDGEFIELD-2012-BP-10507BP

PATIENT
  Sex: Female
  Weight: 62.14 kg

DRUGS (1)
  1. TRADJENTA [Suspect]
     Indication: DIABETES MELLITUS
     Dosage: 5 MG
     Dates: start: 20120428, end: 20120501

REACTIONS (2)
  - OROPHARYNGEAL PAIN [None]
  - NAUSEA [None]
